FAERS Safety Report 13163293 (Version 1)
Quarter: 2017Q1

REPORT INFORMATION
  Report Type: Spontaneous
  Country: CN (occurrence: CN)
  Receive Date: 20170130
  Receipt Date: 20170130
  Transmission Date: 20170428
  Serious: Yes (Other)
  Sender: FDA-Public Use
  Company Number: CN-JNJFOC-20170122265

PATIENT

DRUGS (2)
  1. ITRACONAZOLE. [Suspect]
     Active Substance: ITRACONAZOLE
     Indication: SYSTEMIC MYCOSIS
     Dosage: DOSE WAS 400 MG/D EVERY 12 HOUR ON DAY 1-2 AND 200 MG/D ON DAY 3-14
     Route: 042
  2. ITRACONAZOLE. [Suspect]
     Active Substance: ITRACONAZOLE
     Indication: SYSTEMIC MYCOSIS
     Dosage: FOR 2-4 WEEKS
     Route: 048

REACTIONS (7)
  - Diarrhoea [Unknown]
  - Renal impairment [Unknown]
  - Nausea [Unknown]
  - Hepatic function abnormal [Unknown]
  - Hypokalaemia [Unknown]
  - Vomiting [Unknown]
  - Blood urea increased [Unknown]
